FAERS Safety Report 7724366-X (Version None)
Quarter: 2011Q3

REPORT INFORMATION
  Report Type: 
  Country: None (occurrence: None)
  Receive Date: 20110901
  Receipt Date: 20110825
  Transmission Date: 20111222
  Serious: Yes (Hospitalization)
  Sender: FDA-Public Use
  Company Number: US-JNJFOC-20110812848

PATIENT
  Sex: Male
  Weight: 79.9 kg

DRUGS (3)
  1. INFLIXIMAB, RECOMBINANT [Suspect]
     Indication: CROHN'S DISEASE
     Route: 042
     Dates: start: 20101111
  2. NEXIUM [Concomitant]
  3. MESALAMINE [Concomitant]
     Route: 048

REACTIONS (1)
  - CROHN'S DISEASE [None]
